FAERS Safety Report 8149245 (Version 2)
Quarter: 2013Q1

REPORT INFORMATION
  Report Type: Spontaneous
  Country: US (occurrence: US)
  Receive Date: 20110922
  Receipt Date: 20130215
  Transmission Date: 20140127
  Serious: Yes (Other)
  Sender: FDA-Public Use
  Company Number: US-ASTRAZENECA-2011SE12613

PATIENT
  Age: 48 Year
  Sex: Male

DRUGS (23)
  1. SEROQUEL [Suspect]
     Route: 048
     Dates: start: 20041204
  2. SEROQUEL [Suspect]
     Route: 048
     Dates: start: 20051210
  3. SEROQUEL [Suspect]
     Route: 048
     Dates: start: 20051210
  4. WELLBUTRIN XL [Concomitant]
     Route: 048
     Dates: start: 20041204
  5. WELLBUTRIN XL [Concomitant]
     Dosage: WAFFERS
     Dates: start: 20050115
  6. KLONOPIN [Concomitant]
     Route: 048
     Dates: start: 20041204
  7. KLONOPIN [Concomitant]
     Route: 048
     Dates: start: 20050226
  8. KLONOPIN [Concomitant]
     Route: 048
     Dates: start: 20050226
  9. KLONOPIN [Concomitant]
     Route: 048
     Dates: start: 20050607
  10. KLONOPIN [Concomitant]
     Route: 048
     Dates: start: 20051210
  11. LAMICTAL [Concomitant]
     Route: 048
     Dates: start: 20050702
  12. LAMICTAL [Concomitant]
     Route: 048
     Dates: start: 20050806
  13. ABILIFY [Concomitant]
     Dates: start: 200701
  14. ABILIFY [Concomitant]
     Route: 048
     Dates: start: 20060121
  15. ABILIFY [Concomitant]
     Route: 048
     Dates: start: 20070602
  16. ABILIFY [Concomitant]
     Route: 048
     Dates: start: 20071117
  17. LUNESTA [Concomitant]
     Route: 048
     Dates: start: 20070119
  18. VICODIN HP [Concomitant]
     Dosage: 10/325
     Dates: start: 200701
  19. PREVACID [Concomitant]
     Dates: start: 200701
  20. NEURONTIN [Concomitant]
     Dates: start: 200701
  21. LITHOBID [Concomitant]
     Indication: BIPOLAR DISORDER
     Dates: start: 20070127
  22. RISPERDAL [Concomitant]
     Indication: BIPOLAR DISORDER
     Dates: start: 200701
  23. FLEXERIL [Concomitant]
     Dates: start: 200701

REACTIONS (3)
  - Pancreatitis [Unknown]
  - Diabetic coma [Unknown]
  - Type 2 diabetes mellitus [Unknown]
